FAERS Safety Report 5731897-0 (Version None)
Quarter: 2008Q2

REPORT INFORMATION
  Report Type: 
  Country: None (occurrence: None)
  Receive Date: 20080508
  Receipt Date: 20080502
  Transmission Date: 20081010
  Serious: Yes (Other)
  Sender: FDA-Public Use
  Company Number: US-WYE-H03898508

PATIENT
  Age: 17 Year
  Sex: Female
  Weight: 86.26 kg

DRUGS (3)
  1. EFFEXOR XR [Suspect]
     Indication: DEPRESSION
     Route: 048
     Dates: start: 20020101, end: 20070101
  2. EFFEXOR XR [Suspect]
     Indication: ANXIETY
  3. SEROQUEL [Concomitant]
     Dosage: UNKNOWN

REACTIONS (1)
  - FIBROCYSTIC BREAST DISEASE [None]
